FAERS Safety Report 19819558 (Version 1)
Quarter: 2021Q3

REPORT INFORMATION
  Report Type: Spontaneous
  Country: JP (occurrence: JP)
  Receive Date: 20210913
  Receipt Date: 20210913
  Transmission Date: 20211014
  Serious: Yes (Hospitalization, Other)
  Sender: FDA-Public Use
  Company Number: JP-TEVA-2021-JP-1951626

PATIENT
  Age: 7 Decade

DRUGS (2)
  1. AZILECT [Suspect]
     Active Substance: RASAGILINE MESYLATE
     Indication: PARKINSON^S DISEASE
     Dosage: THERAPY DURATION 10 DAYS
     Route: 048
     Dates: start: 201906
  2. EC DOPARL [Concomitant]
     Active Substance: BENSERAZIDE HYDROCHLORIDE\LEVODOPA
     Route: 065

REACTIONS (3)
  - Neoplasm malignant [Not Recovered/Not Resolved]
  - Throat cancer [Not Recovered/Not Resolved]
  - Malignant neoplasm of thorax [Not Recovered/Not Resolved]

NARRATIVE: CASE EVENT DATE: 201906
